FAERS Safety Report 15985328 (Version 2)
Quarter: 2022Q1

REPORT INFORMATION
  Report Type: Report from Study
  Country: US (occurrence: None)
  Receive Date: 20190220
  Receipt Date: 20220204
  Transmission Date: 20220423
  Serious: Yes (Hospitalization, Other)
  Sender: FDA-Public Use
  Company Number: US-MERCK KGAA-9072664

PATIENT
  Age: 58 Year
  Sex: Female

DRUGS (3)
  1. REBIF [Suspect]
     Active Substance: INTERFERON BETA-1A
     Indication: Product used for unknown indication
     Route: 058
     Dates: start: 20180417
  2. REBIF [Suspect]
     Active Substance: INTERFERON BETA-1A
     Route: 058
  3. REBIF [Suspect]
     Active Substance: INTERFERON BETA-1A
     Dosage: PREVIOUSLY: REBIJECT II.
     Route: 058
     Dates: start: 20210823

REACTIONS (12)
  - Myocardial infarction [Unknown]
  - Intervertebral disc protrusion [Unknown]
  - Spinal cord injury [Not Recovered/Not Resolved]
  - Nerve compression [Recovered/Resolved]
  - Pulmonary oedema [Unknown]
  - Blood iron abnormal [Unknown]
  - Bronchitis [Unknown]
  - Muscle tightness [Unknown]
  - Post procedural complication [Unknown]
  - Muscle spasms [Unknown]
  - Headache [Recovered/Resolved]
  - Product dose omission issue [Unknown]

NARRATIVE: CASE EVENT DATE: 20181106
